FAERS Safety Report 17644682 (Version 7)
Quarter: 2023Q4

REPORT INFORMATION
  Report Type: Report from Study
  Country: DK (occurrence: None)
  Receive Date: 20200408
  Receipt Date: 20231004
  Transmission Date: 20240110
  Serious: Yes (Life-Threatening, Hospitalization)
  Sender: FDA-Public Use
  Company Number: DK-ROCHE-2566973

PATIENT
  Age: 75 Year
  Sex: Male
  Weight: 66.8 kg

DRUGS (103)
  1. VENETOCLAX [Suspect]
     Active Substance: VENETOCLAX
     Indication: Chronic lymphocytic leukaemia
     Route: 048
     Dates: start: 20160211
  2. VENETOCLAX [Suspect]
     Active Substance: VENETOCLAX
     Dosage: ON 23/DEC/2016, HE RECEIVED RECENT DOSE OF VENETOCLAX.
     Route: 048
  3. OBINUTUZUMAB [Suspect]
     Active Substance: OBINUTUZUMAB
     Indication: Chronic lymphocytic leukaemia
     Route: 042
     Dates: start: 20160121
  4. OBINUTUZUMAB [Suspect]
     Active Substance: OBINUTUZUMAB
     Dosage: ON 15/JUN/2016, AT 8:50, HE RECEIVED RECENT DOSE OF OBINUTUZUMAB.
     Route: 042
  5. METFORMIN [Concomitant]
     Active Substance: METFORMIN HYDROCHLORIDE
     Indication: Diabetes mellitus
     Route: 048
  6. ACETAMINOPHEN [Concomitant]
     Active Substance: ACETAMINOPHEN
     Indication: Arthralgia
     Route: 048
     Dates: start: 20160916
  7. ACETAMINOPHEN [Concomitant]
     Active Substance: ACETAMINOPHEN
     Route: 048
     Dates: start: 20200313, end: 20200316
  8. ACETAMINOPHEN [Concomitant]
     Active Substance: ACETAMINOPHEN
     Route: 048
     Dates: start: 20200420, end: 20200429
  9. ACETAMINOPHEN [Concomitant]
     Active Substance: ACETAMINOPHEN
     Route: 048
     Dates: start: 20200429
  10. FLUOCORTOLONE [Concomitant]
     Active Substance: FLUOCORTOLONE
     Indication: Anal pruritus
     Route: 062
     Dates: start: 20161205
  11. LIDOCAINE [Concomitant]
     Active Substance: LIDOCAINE
     Indication: Anal pruritus
     Route: 062
     Dates: start: 20161205
  12. LIDOCAINE [Concomitant]
     Active Substance: LIDOCAINE
     Indication: Analgesic therapy
     Route: 058
     Dates: start: 20200313, end: 20200318
  13. LIDOCAINE [Concomitant]
     Active Substance: LIDOCAINE
     Route: 058
     Dates: start: 20200420, end: 20200420
  14. BETOLVEX [Concomitant]
     Indication: Vitamin supplementation
     Route: 048
     Dates: start: 20180320
  15. LOSARTAN [Concomitant]
     Active Substance: LOSARTAN
     Indication: Hypertension
     Route: 048
     Dates: start: 20190821, end: 20200417
  16. JARDIANCE [Concomitant]
     Active Substance: EMPAGLIFLOZIN
     Indication: Type 2 diabetes mellitus
     Route: 048
     Dates: start: 20190325, end: 20200310
  17. JARDIANCE [Concomitant]
     Active Substance: EMPAGLIFLOZIN
     Route: 048
     Dates: start: 20200325, end: 20200417
  18. PHENERGAN [Concomitant]
     Active Substance: PROMETHAZINE HYDROCHLORIDE
     Indication: Insomnia
     Route: 048
     Dates: start: 20200112
  19. SODIUM PICOSULFATE [Concomitant]
     Active Substance: SODIUM PICOSULFATE
     Indication: Constipation
     Route: 048
     Dates: start: 20200306, end: 20200416
  20. CLEMASTINE [Concomitant]
     Active Substance: CLEMASTINE
     Indication: Anaphylactic shock
     Route: 042
     Dates: start: 20200308, end: 20200308
  21. THIAMINE [Concomitant]
     Active Substance: THIAMINE
     Indication: Vitamin supplementation
     Route: 048
     Dates: start: 20200309, end: 20200318
  22. POTASSIUM CHLORIDE [Concomitant]
     Active Substance: POTASSIUM CHLORIDE
     Route: 048
     Dates: start: 20200309, end: 20200322
  23. POTASSIUM CHLORIDE [Concomitant]
     Active Substance: POTASSIUM CHLORIDE
     Route: 048
     Dates: start: 20200311, end: 20200427
  24. POTASSIUM CHLORIDE [Concomitant]
     Active Substance: POTASSIUM CHLORIDE
     Route: 042
     Dates: start: 20200421, end: 20200429
  25. SODIUM CHLORIDE [Concomitant]
     Active Substance: SODIUM CHLORIDE
     Route: 042
     Dates: start: 20200308, end: 20200425
  26. RINGER-ACETAT [Concomitant]
     Route: 042
     Dates: start: 20200309, end: 20200423
  27. NOVORAPID [Concomitant]
     Active Substance: INSULIN ASPART
     Route: 042
     Dates: start: 20200309, end: 20200424
  28. NOVORAPID [Concomitant]
     Active Substance: INSULIN ASPART
     Route: 058
     Dates: start: 20200310, end: 20200324
  29. FUROSEMIDE [Concomitant]
     Active Substance: FUROSEMIDE
     Indication: Oedema
     Route: 042
     Dates: start: 20200309, end: 20200422
  30. CEFUROXIME [Concomitant]
     Active Substance: CEFUROXIME
     Indication: Infection
     Route: 042
     Dates: start: 20200313, end: 20200320
  31. CEFUROXIME [Concomitant]
     Active Substance: CEFUROXIME
     Route: 042
     Dates: start: 20200420, end: 20200429
  32. DALTEPARIN [Concomitant]
     Active Substance: DALTEPARIN
     Indication: Thrombosis
     Route: 058
     Dates: start: 20200313, end: 20200326
  33. DALTEPARIN [Concomitant]
     Active Substance: DALTEPARIN
     Route: 058
     Dates: start: 20200420, end: 20200429
  34. BETAMETHASONE [Concomitant]
     Active Substance: BETAMETHASONE
     Indication: Rash
     Dosage: 1 UNIT
     Dates: start: 20200309
  35. MORPHINE [Concomitant]
     Active Substance: MORPHINE
     Route: 048
     Dates: start: 20200312, end: 20200326
  36. MORPHINE [Concomitant]
     Active Substance: MORPHINE
     Route: 048
     Dates: start: 20200420, end: 20200429
  37. MORPHINE [Concomitant]
     Active Substance: MORPHINE
     Route: 058
     Dates: start: 20200313, end: 20200326
  38. MORPHINE [Concomitant]
     Active Substance: MORPHINE
     Route: 058
     Dates: start: 20200420, end: 20200429
  39. MORPHINE [Concomitant]
     Active Substance: MORPHINE
     Route: 048
     Dates: start: 20200316, end: 20200316
  40. MORPHINE [Concomitant]
     Active Substance: MORPHINE
     Route: 042
     Dates: start: 20200420, end: 20200429
  41. SUFENTANIL [Concomitant]
     Active Substance: SUFENTANIL
     Indication: Pain
     Route: 042
     Dates: start: 20200420, end: 20200420
  42. SUFENTANIL [Concomitant]
     Active Substance: SUFENTANIL
     Route: 042
     Dates: start: 20200313, end: 20200313
  43. SUFENTANIL [Concomitant]
     Active Substance: SUFENTANIL
     Route: 042
     Dates: start: 20200316, end: 20200316
  44. REMIFENTANIL [Concomitant]
     Active Substance: REMIFENTANIL
     Indication: General anaesthesia
     Route: 042
     Dates: start: 20200420, end: 20200420
  45. REMIFENTANIL [Concomitant]
     Active Substance: REMIFENTANIL
     Route: 042
     Dates: start: 20200313, end: 20200313
  46. REMIFENTANIL [Concomitant]
     Active Substance: REMIFENTANIL
     Route: 042
     Dates: start: 20200316, end: 20200316
  47. PROPOFOL [Concomitant]
     Active Substance: PROPOFOL
     Indication: General anaesthesia
     Route: 042
     Dates: start: 20200420, end: 20200420
  48. PROPOFOL [Concomitant]
     Active Substance: PROPOFOL
     Route: 042
     Dates: start: 20200313, end: 20200313
  49. PROPOFOL [Concomitant]
     Active Substance: PROPOFOL
     Route: 042
     Dates: start: 20200316, end: 20200316
  50. PHENYLEPHRINE [Concomitant]
     Active Substance: PHENYLEPHRINE HYDROCHLORIDE
     Indication: General anaesthesia
     Route: 042
     Dates: start: 20200420, end: 20200420
  51. PHENYLEPHRINE [Concomitant]
     Active Substance: PHENYLEPHRINE HYDROCHLORIDE
     Route: 042
     Dates: start: 20200313, end: 20200313
  52. PHENYLEPHRINE [Concomitant]
     Active Substance: PHENYLEPHRINE HYDROCHLORIDE
     Route: 042
     Dates: start: 20200316, end: 20200316
  53. PETIDIN [Concomitant]
     Indication: General anaesthesia
     Route: 042
     Dates: start: 20200420, end: 20200420
  54. PETIDIN [Concomitant]
     Route: 042
     Dates: start: 20200313, end: 20200313
  55. PETIDIN [Concomitant]
     Route: 042
     Dates: start: 20200316, end: 20200316
  56. CYANOCOBALAMIN [Concomitant]
     Active Substance: CYANOCOBALAMIN
     Route: 048
     Dates: start: 20180320
  57. ONDANSETRON [Concomitant]
     Active Substance: ONDANSETRON
     Indication: Procedural nausea
     Route: 042
     Dates: start: 20200313, end: 20200317
  58. ONDANSETRON [Concomitant]
     Active Substance: ONDANSETRON
     Route: 042
     Dates: start: 20200420, end: 20200429
  59. NOREPINEPHRINE [Concomitant]
     Active Substance: NOREPINEPHRINE
     Dosage: USED DURING GENERAL ANESTHESIA
     Route: 042
     Dates: start: 20200313, end: 20200313
  60. BUPIVACAINE [Concomitant]
     Active Substance: BUPIVACAINE
     Dosage: USED IN GENERAL ANESTHESIA
     Route: 008
     Dates: start: 20200313, end: 20200313
  61. BUPIVACAINE [Concomitant]
     Active Substance: BUPIVACAINE
     Dosage: USED IN GENERAL ANESTHESIA
     Route: 058
     Dates: start: 20200420, end: 20200420
  62. BUPIVACAINE [Concomitant]
     Active Substance: BUPIVACAINE
     Dosage: USED IN GENERAL ANESTHESIA
     Route: 008
     Dates: start: 20200420, end: 20200420
  63. KETOROLAC [Concomitant]
     Active Substance: KETOROLAC TROMETHAMINE
     Indication: Pain
     Route: 042
     Dates: start: 20200313, end: 20200316
  64. KETOROLAC [Concomitant]
     Active Substance: KETOROLAC TROMETHAMINE
     Route: 042
     Dates: start: 20200420, end: 20200420
  65. ALBUMIN HUMAN [Concomitant]
     Active Substance: ALBUMIN HUMAN
     Dosage: USED DURING GENERAL ANESTHESIA
     Route: 042
     Dates: start: 20200313, end: 20200313
  66. ALBUMIN HUMAN [Concomitant]
     Active Substance: ALBUMIN HUMAN
     Dosage: USED DURING GENERAL ANESTHESIA
     Route: 042
     Dates: start: 20200420, end: 20200420
  67. NALOXONE HYDROCHLORIDE [Concomitant]
     Active Substance: NALOXONE HYDROCHLORIDE
     Dosage: ABOLITION OF RESPIRATORY DEPRESSION
     Route: 042
     Dates: start: 20200313, end: 20200313
  68. NALOXONE HYDROCHLORIDE [Concomitant]
     Active Substance: NALOXONE HYDROCHLORIDE
     Dosage: ABOLITION OF RESPIRATORY DEPRESSION
     Route: 042
     Dates: start: 20200316, end: 20200316
  69. NALOXONE HYDROCHLORIDE [Concomitant]
     Active Substance: NALOXONE HYDROCHLORIDE
     Dosage: ABOLITION OF RESPIRATORY DEPRESSION
     Route: 042
     Dates: start: 20200420, end: 20200420
  70. EPHEDRINE [Concomitant]
     Active Substance: EPHEDRINE
     Dosage: LOW BLOODPRESURE DURING ANESTHESIA
     Route: 042
     Dates: start: 20200313, end: 20200313
  71. EPHEDRINE [Concomitant]
     Active Substance: EPHEDRINE
     Dosage: LOW BLOODPRESURE DURING ANESTHESIA
     Route: 042
     Dates: start: 20200316, end: 20200316
  72. EPHEDRINE [Concomitant]
     Active Substance: EPHEDRINE
     Dosage: LOW BLOODPRESURE DURING ANESTHESIA
     Route: 042
     Dates: start: 20200420, end: 20200420
  73. DEXAMETHASONE [Concomitant]
     Active Substance: DEXAMETHASONE
     Indication: Procedural nausea
     Route: 042
     Dates: start: 20200313, end: 20200313
  74. DEXAMETHASONE [Concomitant]
     Active Substance: DEXAMETHASONE
     Route: 042
     Dates: start: 20200320, end: 20200320
  75. DROPERIDOL [Concomitant]
     Active Substance: DROPERIDOL
     Indication: Procedural nausea
     Route: 042
     Dates: start: 20200313, end: 20200313
  76. DROPERIDOL [Concomitant]
     Active Substance: DROPERIDOL
     Route: 042
     Dates: start: 20200316, end: 20200316
  77. DROPERIDOL [Concomitant]
     Active Substance: DROPERIDOL
     Route: 042
     Dates: start: 20200420, end: 20200420
  78. FENOTEROL HYDROBROMIDE\IPRATROPIUM BROMIDE [Concomitant]
     Active Substance: FENOTEROL HYDROBROMIDE\IPRATROPIUM BROMIDE
     Indication: Bronchospasm
     Dates: start: 20200313, end: 20200313
  79. FENOTEROL HYDROBROMIDE\IPRATROPIUM BROMIDE [Concomitant]
     Active Substance: FENOTEROL HYDROBROMIDE\IPRATROPIUM BROMIDE
     Dates: start: 20200316, end: 20200316
  80. FENOTEROL HYDROBROMIDE\IPRATROPIUM BROMIDE [Concomitant]
     Active Substance: FENOTEROL HYDROBROMIDE\IPRATROPIUM BROMIDE
     Dates: start: 20200420, end: 20200420
  81. ATROPINE [Concomitant]
     Active Substance: ATROPINE
     Dosage: BRADYCARDIA DURING ANESTHESIA
     Route: 042
     Dates: start: 20200313, end: 20200313
  82. ATROPINE [Concomitant]
     Active Substance: ATROPINE
     Dosage: BRADYCARDIA DURING ANESTHESIA
     Route: 042
     Dates: start: 20200316, end: 20200316
  83. ATROPINE [Concomitant]
     Active Substance: ATROPINE
     Dosage: BRADYCARDIA DURING ANESTHESIA
     Route: 042
     Dates: start: 20200420, end: 20200420
  84. ALFENTANIL [Concomitant]
     Active Substance: ALFENTANIL
     Indication: General anaesthesia
     Route: 042
     Dates: start: 20200313, end: 20200313
  85. ALFENTANIL [Concomitant]
     Active Substance: ALFENTANIL
     Route: 042
     Dates: start: 20200316, end: 20200316
  86. EPINEPHRINE\LIDOCAINE [Concomitant]
     Active Substance: EPINEPHRINE\LIDOCAINE
     Indication: Epidural analgesia
     Route: 008
     Dates: start: 20200313, end: 20200313
  87. EPINEPHRINE\LIDOCAINE [Concomitant]
     Active Substance: EPINEPHRINE\LIDOCAINE
     Route: 008
     Dates: start: 20200420, end: 20200420
  88. TINZAPARIN [Concomitant]
     Active Substance: TINZAPARIN
     Indication: Thrombosis
     Route: 058
     Dates: start: 20200313, end: 20200313
  89. TINZAPARIN [Concomitant]
     Active Substance: TINZAPARIN
     Route: 058
     Dates: start: 20200314, end: 20200314
  90. SUCCINYLCHOLINE [Concomitant]
     Active Substance: SUCCINYLCHOLINE
     Indication: General anaesthesia
     Route: 042
     Dates: start: 20200316, end: 20200316
  91. MAGNESIUMHYDROXIDE [Concomitant]
     Indication: Constipation
     Route: 048
     Dates: start: 20200317, end: 20200323
  92. MAGNESIUMHYDROXIDE [Concomitant]
     Route: 048
     Dates: start: 20200420, end: 20200429
  93. IBUPROFEN [Concomitant]
     Active Substance: IBUPROFEN
     Indication: Pain
     Route: 048
     Dates: start: 20200317, end: 20200319
  94. METOCLOPRAMIDE [Concomitant]
     Active Substance: METOCLOPRAMIDE
     Indication: Nausea
     Route: 042
     Dates: start: 20200319, end: 20200323
  95. PANTOPRAZOLE [Concomitant]
     Active Substance: PANTOPRAZOLE
     Indication: Ulcer
     Dosage: GASTRIC ACID
     Route: 048
     Dates: start: 20200319, end: 20200326
  96. PANTOPRAZOLE [Concomitant]
     Active Substance: PANTOPRAZOLE
     Dosage: GASTRIC ACID
     Route: 048
     Dates: start: 20200414, end: 20200506
  97. UNSPECIFIED INGREDIENT [Concomitant]
     Active Substance: UNSPECIFIED INGREDIENT
     Dosage: 20 UNIT NOT REPORTED?SUPPLEMENT
     Route: 042
     Dates: start: 20200319, end: 20200324
  98. ZOPICLONE [Concomitant]
     Active Substance: ZOPICLONE
     Indication: Insomnia
     Route: 048
     Dates: start: 20200323, end: 20200326
  99. LOPERAMIDE [Concomitant]
     Active Substance: LOPERAMIDE
     Indication: Diarrhoea
     Route: 048
     Dates: start: 20200324, end: 20200326
  100. FENTANYL [Concomitant]
     Active Substance: FENTANYL
     Indication: Pain
     Route: 042
     Dates: start: 20200420, end: 20200420
  101. CALCIUM GLUCONATE [Concomitant]
     Active Substance: CALCIUM GLUCONATE
     Indication: Hypocalcaemia
     Dosage: 4.5 OTHER
     Route: 042
     Dates: start: 20200420, end: 20200429
  102. GABAPENTIN [Concomitant]
     Active Substance: GABAPENTIN
     Indication: Pain
     Route: 048
     Dates: start: 20200420, end: 20200422
  103. FLUCONAZOLE [Concomitant]
     Active Substance: FLUCONAZOLE
     Dosage: FUNGUS
     Route: 048
     Dates: start: 20200425, end: 20200429

REACTIONS (2)
  - Infection [Recovered/Resolved with Sequelae]
  - Colon cancer [Recovered/Resolved]

NARRATIVE: CASE EVENT DATE: 20200308
